FAERS Safety Report 9743988 (Version 1)
Quarter: 2013Q4

REPORT INFORMATION
  Report Type: Spontaneous
  Country: US (occurrence: US)
  Receive Date: 20131210
  Receipt Date: 20131210
  Transmission Date: 20140711
  Serious: No
  Sender: FDA-Public Use
  Company Number: US-BIOGENIDEC-2013BI099682

PATIENT
  Sex: Female

DRUGS (11)
  1. TECFIDERA [Suspect]
     Indication: MULTIPLE SCLEROSIS
     Route: 048
     Dates: start: 20130907
  2. TECFIDERA [Suspect]
     Indication: MULTIPLE SCLEROSIS
     Route: 048
  3. KLONOPIN [Concomitant]
  4. SYNTHROID [Concomitant]
  5. GABAPENTIN [Concomitant]
  6. MELOXICAM [Concomitant]
  7. LEXAPRO [Concomitant]
  8. BIOTIN [Concomitant]
  9. STOLL SOFTENER [Concomitant]
  10. BIOTENE [Concomitant]
  11. ORALBALANCE GEL [Concomitant]

REACTIONS (1)
  - Constipation [Unknown]
